FAERS Safety Report 8036622-9 (Version None)
Quarter: 2012Q1

REPORT INFORMATION
  Report Type: 
  Country: None (occurrence: None)
  Receive Date: 20120111
  Receipt Date: 20120106
  Transmission Date: 20120608
  Serious: Yes (Hospitalization)
  Sender: FDA-Public Use
  Company Number: PHEH2012US000895

PATIENT
  Sex: Female

DRUGS (1)
  1. GLEEVEC [Suspect]
     Indication: NEOPLASM
     Dosage: 200 MG, BID
     Route: 048
     Dates: start: 20081104

REACTIONS (3)
  - DIARRHOEA [None]
  - HIP FRACTURE [None]
  - FALL [None]
